FAERS Safety Report 5395530-2 (Version None)
Quarter: 2007Q3

REPORT INFORMATION
  Report Type: 
  Country: None (occurrence: None)
  Receive Date: 20070724
  Receipt Date: 20070712
  Transmission Date: 20080115
  Serious: Yes (Hospitalization)
  Sender: FDA-Public Use
  Company Number: CH-SANOFI-SYNTHELABO-A01200707653

PATIENT
  Age: 77 Year
  Sex: Female

DRUGS (5)
  1. FOLIC ACID [Concomitant]
     Route: 048
  2. NEXIUM [Concomitant]
     Route: 048
  3. METHOTREXATE [Suspect]
     Indication: POLYARTHRITIS
     Route: 048
     Dates: start: 20070301, end: 20070327
  4. PLAQUENIL [Suspect]
     Indication: POLYARTHRITIS
     Route: 048
     Dates: start: 20070301, end: 20070327
  5. IRON [Concomitant]
     Dosage: 2 TABLETS A DAY
     Route: 048

REACTIONS (5)
  - HEPATIC ENZYME INCREASED [None]
  - LARGE INTESTINAL ULCER [None]
  - PANCREATITIS [None]
  - PANCYTOPENIA [None]
  - RECTAL HAEMORRHAGE [None]
